FAERS Safety Report 8387232-5 (Version None)
Quarter: 2012Q2

REPORT INFORMATION
  Report Type: 
  Country: None (occurrence: None)
  Receive Date: 20120525
  Receipt Date: 20120509
  Transmission Date: 20120825
  Serious: Yes (Death, Life-Threatening, Hospitalization)
  Sender: FDA-Public Use
  Company Number: DE-ROCHE-1068139

PATIENT
  Sex: Female

DRUGS (10)
  1. BERLINSULIN H 30/70 [Concomitant]
  2. METOPROLOL SUCCINATE [Concomitant]
  3. MABTHERA [Suspect]
     Indication: RHEUMATOID ARTHRITIS
     Route: 042
     Dates: start: 20080305
  4. MABTHERA [Suspect]
     Dosage: FIRST INFUSION OF THIRD CYCLE
     Route: 042
     Dates: start: 20100228
  5. ATACAND [Concomitant]
  6. HYDROCHLOROTHIAZIDE [Concomitant]
  7. BERLINSULIN H NORMAL [Concomitant]
  8. PREDNISOLONE [Concomitant]
     Indication: RHEUMATOID ARTHRITIS
  9. PK-MERZ [Concomitant]
  10. MABTHERA [Suspect]
     Dosage: SECOND INFUSION OF THIRD CYCLE
     Route: 042
     Dates: start: 20100304

REACTIONS (6)
  - CARDIAC FAILURE [None]
  - VOMITING [None]
  - DRUG INTOLERANCE [None]
  - CEREBRAL HAEMORRHAGE [None]
  - DEHYDRATION [None]
  - ACUTE MYOCARDIAL INFARCTION [None]
